FAERS Safety Report 7622866-4 (Version None)
Quarter: 2011Q3

REPORT INFORMATION
  Report Type: 
  Country: None (occurrence: None)
  Receive Date: 20110720
  Receipt Date: 20110711
  Transmission Date: 20111222
  Serious: Yes (Other)
  Sender: FDA-Public Use
  Company Number: DE-GENZYME-CAMP-1001747

PATIENT

DRUGS (4)
  1. CAMPATH [Suspect]
     Indication: CHRONIC LYMPHOCYTIC LEUKAEMIA
     Dosage: 30 MG, 3X/W FOR 28 DAYS
     Route: 058
  2. PEGFILGRASTIM [Concomitant]
     Indication: PROPHYLAXIS
     Dosage: 6 MG, QD DAY 1 AND 15
     Route: 065
  3. DEXAMETHASONE [Suspect]
     Indication: CHRONIC LYMPHOCYTIC LEUKAEMIA
     Dosage: 40 MG, QD DAY 1-4
     Route: 048
  4. DEXAMETHASONE [Suspect]
     Dosage: 40 MG, QD DAY 15-18
     Route: 048

REACTIONS (3)
  - DIARRHOEA [None]
  - THYROIDITIS [None]
  - PYREXIA [None]
